FAERS Safety Report 6081222-3 (Version None)
Quarter: 2009Q1

REPORT INFORMATION
  Report Type: 
  Country: None (occurrence: None)
  Receive Date: 20090213
  Receipt Date: 20090129
  Transmission Date: 20090719
  Serious: Yes (Hospitalization)
  Sender: FDA-Public Use
  Company Number: 8041751

PATIENT
  Age: 21 Year
  Sex: Female
  Weight: 58.9 kg

DRUGS (7)
  1. CIMZIA [Suspect]
     Indication: CROHN'S DISEASE
     Dosage: 400 MG SC
     Route: 058
     Dates: start: 20080912
  2. ZOLOFT [Concomitant]
  3. WELLBUTRIN XL [Concomitant]
  4. VERAPAMIL [Concomitant]
  5. DEPO PROVERA /00115201/ [Concomitant]
  6. PERCOCET [Concomitant]
  7. PHENERGAN HCL [Concomitant]

REACTIONS (5)
  - ABDOMINAL PAIN [None]
  - ANAL FISTULA [None]
  - HAEMATOCHEZIA [None]
  - NAUSEA [None]
  - VAGINAL FISTULA [None]
